FAERS Safety Report 21856799 (Version 1)
Quarter: 2023Q1

REPORT INFORMATION
  Report Type: Spontaneous
  Country: IL (occurrence: IL)
  Receive Date: 20230113
  Receipt Date: 20230113
  Transmission Date: 20230418
  Serious: Yes (Other)
  Sender: FDA-Public Use
  Company Number: IL-BoehringerIngelheim-2023-BI-212321

PATIENT
  Age: 69 Year
  Sex: Male

DRUGS (1)
  1. EMPAGLIFLOZIN\METFORMIN HYDROCHLORIDE [Suspect]
     Active Substance: EMPAGLIFLOZIN\METFORMIN HYDROCHLORIDE
     Indication: Product used for unknown indication
     Dosage: 850/12.5MG
     Dates: start: 202210

REACTIONS (2)
  - End stage renal disease [Not Recovered/Not Resolved]
  - Dialysis [Not Recovered/Not Resolved]
